FAERS Safety Report 6540155-6 (Version None)
Quarter: 2010Q1

REPORT INFORMATION
  Report Type: 
  Country: None (occurrence: None)
  Receive Date: 20100115
  Receipt Date: 20100106
  Transmission Date: 20100710
  Serious: Yes (Hospitalization)
  Sender: FDA-Public Use
  Company Number: NL-CELGENEUS-114-50794-10010182

PATIENT
  Sex: Female
  Weight: 77 kg

DRUGS (3)
  1. VIDAZA [Suspect]
     Route: 050
     Dates: start: 20091104, end: 20091110
  2. LEVOTHYROXINE SODIUM [Concomitant]
     Indication: HYPOTHYROIDISM
     Route: 065
     Dates: start: 20070101
  3. IRBESARTAN [Concomitant]
     Indication: HYPERTENSION
     Route: 065

REACTIONS (3)
  - CARDIAC FAILURE [None]
  - FLUID OVERLOAD [None]
  - GENITAL ABSCESS [None]
